FAERS Safety Report 10143460 (Version 3)
Quarter: 2014Q2

REPORT INFORMATION
  Report Type: Spontaneous
  Country: JP (occurrence: JP)
  Receive Date: 20140430
  Receipt Date: 20140523
  Transmission Date: 20141212
  Serious: Yes (Other)
  Sender: FDA-Public Use
  Company Number: JP-JNJFOC-20140418565

PATIENT
  Age: 55 Year
  Sex: Female

DRUGS (3)
  1. SOVRIAD [Suspect]
     Indication: CHRONIC HEPATITIS C
     Route: 048
     Dates: start: 20140219, end: 20140513
  2. COPEGUS [Suspect]
     Indication: CHRONIC HEPATITIS C
     Route: 048
     Dates: start: 20140219, end: 20140423
  3. PEGASYS [Concomitant]
     Indication: CHRONIC HEPATITIS C
     Route: 058
     Dates: start: 20140219

REACTIONS (2)
  - Anaemia [Not Recovered/Not Resolved]
  - Off label use [Unknown]
